FAERS Safety Report 18472755 (Version 1)
Quarter: 2020Q4

REPORT INFORMATION
  Report Type: Spontaneous
  Country: US (occurrence: US)
  Receive Date: 20201106
  Receipt Date: 20201106
  Transmission Date: 20210114
  Serious: No
  Sender: FDA-Public Use
  Company Number: US-NEURELIS, INC.-2020NEU000146

PATIENT
  Sex: Female
  Weight: 34.92 kg

DRUGS (2)
  1. VALTOCO [Suspect]
     Active Substance: DIAZEPAM
     Indication: SEIZURE
     Dosage: 5 MG
     Route: 045
     Dates: start: 20201019
  2. VALTOCO [Suspect]
     Active Substance: DIAZEPAM
     Indication: EPILEPSY
     Dosage: 10 MG, PRN
     Route: 045
     Dates: start: 20200915, end: 20201018

REACTIONS (3)
  - Oxygen saturation decreased [Unknown]
  - Sedation [Unknown]
  - Somnolence [Unknown]

NARRATIVE: CASE EVENT DATE: 2020
